FAERS Safety Report 8837283 (Version 1)
Quarter: 2012Q4

REPORT INFORMATION
  Report Type: Spontaneous
  Country: US (occurrence: None)
  Receive Date: 20121011
  Receipt Date: 20121011
  Transmission Date: 20130627
  Serious: Yes (Life-Threatening, Hospitalization, Disabling)
  Sender: FDA-Public Use
  Company Number: None

PATIENT
  Age: 65 Year
  Sex: Male
  Weight: 90.7 kg

DRUGS (1)
  1. NIMODIPINE [Suspect]
     Indication: SUBARACHNOID HEMORRHAGE
     Dosage: 60 mg every 4 hours other
     Route: 050
     Dates: start: 20120917, end: 20121008

REACTIONS (6)
  - Blood pressure decreased [None]
  - Heart rate decreased [None]
  - Renal failure acute [None]
  - Atrial fibrillation [None]
  - Dialysis [None]
  - Incorrect route of drug administration [None]
